FAERS Safety Report 7192191-7 (Version None)
Quarter: 2010Q4

REPORT INFORMATION
  Report Type: 
  Country: None (occurrence: None)
  Receive Date: 20101223
  Receipt Date: 20101213
  Transmission Date: 20110411
  Serious: Yes (Other)
  Sender: FDA-Public Use
  Company Number: US-BAYER-2010-006219

PATIENT
  Sex: Female

DRUGS (2)
  1. YAZ [Suspect]
     Dosage: UNK
     Route: 048
     Dates: start: 20030901, end: 20080901
  2. YASMIN [Suspect]
     Dosage: UNK
     Route: 048
     Dates: start: 20030901, end: 20080901

REACTIONS (3)
  - CHOLECYSTECTOMY [None]
  - GALLBLADDER DISORDER [None]
  - PAIN [None]
